FAERS Safety Report 25215322 (Version 1)
Quarter: 2025Q2

REPORT INFORMATION
  Report Type: Spontaneous
  Country: US (occurrence: US)
  Receive Date: 20250418
  Receipt Date: 20250418
  Transmission Date: 20250717
  Serious: No
  Sender: ABBVIE
  Company Number: US-ABBVIE-6231978

PATIENT

DRUGS (2)
  1. SKYRIZI [Suspect]
     Active Substance: RISANKIZUMAB-RZAA
     Indication: Product used for unknown indication
     Route: 058
  2. TAMOXIFEN [Suspect]
     Active Substance: TAMOXIFEN
     Indication: Product used for unknown indication
     Route: 065

REACTIONS (1)
  - Thrombocytopenia [Recovering/Resolving]
